FAERS Safety Report 6390899-4 (Version None)
Quarter: 2009Q4

REPORT INFORMATION
  Report Type: 
  Country: None (occurrence: None)
  Receive Date: 20091003
  Receipt Date: 20090916
  Transmission Date: 20100525
  Serious: Yes (Hospitalization)
  Sender: FDA-Public Use
  Company Number: F03200900107

PATIENT
  Age: 49 Year
  Sex: Male

DRUGS (7)
  1. FLUDARABINE PHOSPHATE [Suspect]
     Indication: CHRONIC LYMPHOCYTIC LEUKAEMIA
     Dosage: 90 MG Q4W ORAL
     Route: 048
     Dates: start: 20090324, end: 20090828
  2. (ALEMTUZUMAB) - UNKNOWN - UNIT DOSE : UNKNOWN [Suspect]
     Indication: CHRONIC LYMPHOCYTIC LEUKAEMIA
     Dosage: 30 MG Q4W SUBCUTANEOUS
     Route: 058
     Dates: start: 20090324, end: 20090828
  3. CYCLOPHOSPHAMIDE [Suspect]
     Indication: CHRONIC LYMPHOCYTIC LEUKAEMIA
     Dosage: 575 MG Q4W ORAL
     Route: 048
     Dates: start: 20090324, end: 20090828
  4. VALACYCLOVIR HCL [Concomitant]
  5. COTRIM [Concomitant]
  6. FLUCONAZOLE [Concomitant]
  7. OMEPRAZOLE [Concomitant]

REACTIONS (1)
  - PULMONARY EMBOLISM [None]
